FAERS Safety Report 7760732-4 (Version None)
Quarter: 2011Q3

REPORT INFORMATION
  Report Type: 
  Country: None (occurrence: None)
  Receive Date: 20110919
  Receipt Date: 20110602
  Transmission Date: 20111222
  Serious: No
  Sender: FDA-Public Use
  Company Number: US-ALLERGAN-1105804US

PATIENT
  Age: 25 Year
  Sex: Female

DRUGS (1)
  1. LATISSE [Suspect]
     Indication: MADAROSIS
     Dosage: 1 GTT, UNK
     Route: 061
     Dates: start: 20110425

REACTIONS (4)
  - PARAESTHESIA ORAL [None]
  - APPLICATION SITE REACTION [None]
  - URTICARIA [None]
  - BURNING SENSATION [None]
